FAERS Safety Report 12687176 (Version 2)
Quarter: 2017Q3

REPORT INFORMATION
  Report Type: Spontaneous
  Country: US (occurrence: US)
  Receive Date: 20160825
  Receipt Date: 20170927
  Transmission Date: 20171127
  Serious: No
  Sender: FDA-Public Use
  Company Number: US-GLAXOSMITHKLINE-US2016120250

PATIENT
  Sex: Female

DRUGS (1)
  1. IMITREX [Suspect]
     Active Substance: SUMATRIPTAN SUCCINATE
     Indication: MIGRAINE
     Dosage: 20 MG, PRN
     Route: 045
     Dates: start: 201604

REACTIONS (4)
  - Multiple allergies [Unknown]
  - Overdose [Not Recovered/Not Resolved]
  - Drug ineffective [Unknown]
  - Device use error [Unknown]
